FAERS Safety Report 5005654-7 (Version None)
Quarter: 2006Q2

REPORT INFORMATION
  Report Type: 
  Country: None (occurrence: None)
  Receive Date: 20060515
  Receipt Date: 20060421
  Transmission Date: 20061013
  Serious: No
  Sender: FDA-Public Use
  Company Number: 2006052833

PATIENT
  Age: 54 Year
  Sex: Female

DRUGS (14)
  1. LIPITOR [Suspect]
     Indication: HYPERLIPIDAEMIA
     Dosage: 10 MG (10 MG, 1 IN 1 D) ORAL
     Route: 048
     Dates: start: 20060411, end: 20060412
  2. ASPIRIN [Suspect]
     Indication: CEREBRAL INFARCTION
     Dosage: 100 MG (PER DAY) ORAL
     Route: 048
     Dates: start: 20060411, end: 20060411
  3. ROCEPHIN [Concomitant]
  4. CLINDAMYCIN HCL [Concomitant]
  5. PHENOBAL (PHENOBARBITAL) [Concomitant]
  6. PHENYTOIN [Concomitant]
  7. HUMULIN R [Concomitant]
  8. DIPRIVAN [Concomitant]
  9. ISOCAL (CASEIN HYDROLYSATE, FRACTIONATED COCONUT OIL, LECITHIN, LIQUID [Concomitant]
  10. NUTRITIONAL SUPPLEMENT (GENERAL NUTRIENTS) [Concomitant]
  11. MOHRUS (KETOPROFEN) [Concomitant]
  12. LASIX [Concomitant]
  13. BIOFERMIN (BACILLUS SUBTILIS, LACTOBACILLUS ACIDOPHILUS, STREPTOCOCCUS [Concomitant]
  14. PHENYTOIN [Concomitant]

REACTIONS (2)
  - COAGULOPATHY [None]
  - PLATELET COUNT DECREASED [None]
